FAERS Safety Report 8195862-9 (Version None)
Quarter: 2012Q1

REPORT INFORMATION
  Report Type: 
  Country: None (occurrence: None)
  Receive Date: 20120308
  Receipt Date: 20120306
  Transmission Date: 20120608
  Serious: Yes (Death)
  Sender: FDA-Public Use
  Company Number: US-AMGEN-USASP2012014624

PATIENT
  Age: 75 Year
  Sex: Female

DRUGS (2)
  1. COUMADIN [Concomitant]
     Dosage: UNK
  2. PROLIA [Suspect]
     Indication: OSTEOPOROSIS POSTMENOPAUSAL
     Dosage: 60 MG, Q6MO
     Dates: start: 20110523

REACTIONS (1)
  - CEREBROVASCULAR ACCIDENT [None]
